FAERS Safety Report 21477512 (Version 1)
Quarter: 2022Q4

REPORT INFORMATION
  Report Type: Spontaneous
  Country: US (occurrence: None)
  Receive Date: 20221018
  Receipt Date: 20221018
  Transmission Date: 20230113
  Serious: No
  Sender: FDA-Public Use
  Company Number: None

PATIENT
  Age: 71 Year
  Sex: Male
  Weight: 92.08 kg

DRUGS (18)
  1. IMATINIB [Suspect]
     Active Substance: IMATINIB
     Indication: Chronic myeloid leukaemia
     Dosage: FREQUENCY : DAILY;?
     Route: 048
  2. ALLOPURINOL [Concomitant]
     Active Substance: ALLOPURINOL
  3. ASPIRIN [Concomitant]
     Active Substance: ASPIRIN
  4. CLOPIDOGREL [Concomitant]
     Active Substance: CLOPIDOGREL BISULFATE
  5. FENOFIBRATE [Concomitant]
     Active Substance: FENOFIBRATE
  6. GLIPIZIDE [Concomitant]
     Active Substance: GLIPIZIDE
  7. HYDROXYUREA [Concomitant]
     Active Substance: HYDROXYUREA
  8. LOSARTAN [Concomitant]
     Active Substance: LOSARTAN
  9. MAGOX [Concomitant]
  10. METFORMIN [Concomitant]
     Active Substance: METFORMIN HYDROCHLORIDE
  11. METOPROLOL [Concomitant]
     Active Substance: METOPROLOL
  12. NOVOLOG [Suspect]
     Active Substance: INSULIN ASPART
  13. OMEGA 3 [Concomitant]
     Active Substance: CAPSAICIN
  14. HIGH DENSITY POLYETHYLENE [Concomitant]
     Active Substance: HIGH DENSITY POLYETHYLENE
  15. SIMVASTATIN [Concomitant]
     Active Substance: SIMVASTATIN
  16. TYLENOL [Concomitant]
     Active Substance: ACETAMINOPHEN
  17. VICTOZA [Concomitant]
     Active Substance: LIRAGLUTIDE
  18. VITAMIN D [Concomitant]
     Active Substance: VITAMIN D NOS

REACTIONS (1)
  - Pancreatitis [None]
